FAERS Safety Report 6578206-5 (Version None)
Quarter: 2010Q1

REPORT INFORMATION
  Report Type: 
  Country: None (occurrence: None)
  Receive Date: 20100211
  Receipt Date: 20100203
  Transmission Date: 20100710
  Serious: Yes (Death, Hospitalization)
  Sender: FDA-Public Use
  Company Number: US-BAXTER-2010BH002462

PATIENT
  Age: 76 Year
  Sex: Female

DRUGS (2)
  1. DIANEAL [Suspect]
     Indication: PERITONEAL DIALYSIS
     Route: 033
     Dates: end: 20100101
  2. DIANEAL [Suspect]
     Indication: PERITONEAL DIALYSIS
     Route: 033
     Dates: start: 20100101, end: 20100101

REACTIONS (6)
  - DEATH [None]
  - FEELING ABNORMAL [None]
  - MUSCLE SPASMS [None]
  - PERITONITIS [None]
  - PNEUMONIA [None]
  - ULTRAFILTRATION FAILURE [None]
